FAERS Safety Report 23826781 (Version 1)
Quarter: 2024Q2

REPORT INFORMATION
  Report Type: Spontaneous
  Country: US (occurrence: US)
  Receive Date: 20240507
  Receipt Date: 20240507
  Transmission Date: 20240715
  Serious: No
  Sender: FDA-Public Use
  Company Number: USA--2023-US-000344

PATIENT
  Age: 83 Year
  Sex: Female

DRUGS (11)
  1. BRIMONIDINE TARTRATE [Suspect]
     Active Substance: BRIMONIDINE TARTRATE
     Dosage: 1 DROP OQ QD
  2. SYNTHROID [Concomitant]
     Active Substance: LEVOTHYROXINE SODIUM
  3. GHEA ? [Concomitant]
  4. PREGNENOLONE [Concomitant]
     Active Substance: PREGNENOLONE
  5. ATORVASTATIN CALCIUM [Concomitant]
     Active Substance: ATORVASTATIN CALCIUM
  6. Vitrol [Concomitant]
  7. Duloxatene [Concomitant]
  8. LYRICA [Concomitant]
     Active Substance: PREGABALIN
  9. ELIQUIS [Concomitant]
     Active Substance: APIXABAN
  10. VALSARTAN [Concomitant]
     Active Substance: VALSARTAN
  11. SPIRONOLACTONE [Concomitant]
     Active Substance: SPIRONOLACTONE

REACTIONS (1)
  - Eye pain [Recovered/Resolved]
